FAERS Safety Report 12119734 (Version 1)
Quarter: 2016Q1

REPORT INFORMATION
  Report Type: Report from Study
  Country: BR (occurrence: BR)
  Receive Date: 20160226
  Receipt Date: 20160226
  Transmission Date: 20160526
  Serious: Yes (Death, Hospitalization)
  Sender: FDA-Public Use
  Company Number: BR-ABBVIE-16K-020-1566627-00

PATIENT
  Age: 66 Year
  Sex: Female
  Weight: 121 kg

DRUGS (1)
  1. HUMIRA [Suspect]
     Active Substance: ADALIMUMAB
     Indication: ANKYLOSING SPONDYLITIS
     Route: 058
     Dates: start: 20121105

REACTIONS (1)
  - Infarction [Fatal]

NARRATIVE: CASE EVENT DATE: 20160125
